FAERS Safety Report 12608956 (Version 2)
Quarter: 2017Q1

REPORT INFORMATION
  Report Type: Spontaneous
  Country: KR (occurrence: KR)
  Receive Date: 20160731
  Receipt Date: 20170330
  Transmission Date: 20170428
  Serious: Yes (Life-Threatening, Hospitalization, Other)
  Sender: FDA-Public Use
  Company Number: KR-ALEMBIC PHARMACUETICALS LIMITED-2015SCAL000927

PATIENT

DRUGS (2)
  1. HYDROCHLOROTHIAZIDE. [Suspect]
     Active Substance: HYDROCHLOROTHIAZIDE
     Indication: PRODUCT USED FOR UNKNOWN INDICATION
  2. PICOLIGHT [Suspect]
     Active Substance: ANHYDROUS CITRIC ACID\MAGNESIUM OXIDE\SODIUM PICOSULFATE
     Indication: PRODUCT USED FOR UNKNOWN INDICATION

REACTIONS (3)
  - Loss of consciousness [Recovered/Resolved]
  - Seizure [Recovered/Resolved]
  - Hyponatraemia [Recovered/Resolved]
